FAERS Safety Report 10108579 (Version 1)
Quarter: 2014Q2

REPORT INFORMATION
  Report Type: Spontaneous
  Country: CA (occurrence: CA)
  Receive Date: 20140425
  Receipt Date: 20140425
  Transmission Date: 20141212
  Serious: Yes (Other)
  Sender: FDA-Public Use
  Company Number: CA-ROCHE-1389050

PATIENT
  Age: 51 Year
  Sex: Female

DRUGS (5)
  1. XELODA [Suspect]
     Indication: PRODUCT USED FOR UNKNOWN INDICATION
     Route: 065
  2. TYKERB [Suspect]
     Indication: PRODUCT USED FOR UNKNOWN INDICATION
     Dosage: THERAPY DURATION:  348.0 DAY(S)
     Route: 048
  3. COVERSYL [Concomitant]
     Route: 065
  4. OMEPRAZOLE [Concomitant]
  5. PAMIDRONATE DISODIUM [Concomitant]
     Route: 065

REACTIONS (1)
  - Malignant neoplasm progression [Not Recovered/Not Resolved]
